FAERS Safety Report 6231673-9 (Version None)
Quarter: 2009Q2

REPORT INFORMATION
  Report Type: 
  Country: None (occurrence: None)
  Receive Date: 20090616
  Receipt Date: 20090609
  Transmission Date: 20091009
  Serious: Yes (Hospitalization)
  Sender: FDA-Public Use
  Company Number: JP-MERCK-0906USA00746

PATIENT
  Age: 73 Year
  Sex: Male

DRUGS (5)
  1. PEPCID [Suspect]
     Route: 048
     Dates: end: 20090601
  2. GARAMYCIN [Concomitant]
     Route: 048
     Dates: start: 20090525, end: 20090601
  3. THEO-DUR [Suspect]
     Route: 048
     Dates: end: 20090601
  4. CALONAL [Concomitant]
     Route: 048
     Dates: start: 20090525, end: 20090601
  5. MUCOSOLVAN [Concomitant]
     Route: 048
     Dates: start: 20090525, end: 20090601

REACTIONS (2)
  - GENERALISED ERYTHEMA [None]
  - RHABDOMYOLYSIS [None]
